FAERS Safety Report 16939582 (Version 1)
Quarter: 2019Q4

REPORT INFORMATION
  Report Type: Spontaneous
  Country: NL (occurrence: NL)
  Receive Date: 20191021
  Receipt Date: 20191021
  Transmission Date: 20200122
  Serious: Yes (Life-Threatening, Hospitalization)
  Sender: FDA-Public Use
  Company Number: NL-TEVA-2019-NL-1123522

PATIENT
  Age: 19 Year
  Sex: Male

DRUGS (1)
  1. METOCLOPRAMIDE. [Suspect]
     Active Substance: METOCLOPRAMIDE
     Indication: NAUSEA
     Dosage: 2DD10MG
     Route: 065
     Dates: start: 20190925, end: 20190928

REACTIONS (7)
  - Muscle rigidity [Recovered/Resolved]
  - Muscle twitching [Recovered/Resolved]
  - Electrocardiogram abnormal [Recovering/Resolving]
  - Ventricular tachycardia [Recovering/Resolving]
  - Extrapyramidal disorder [Recovered/Resolved]
  - Extrasystoles [Recovering/Resolving]
  - Ventricular extrasystoles [Recovering/Resolving]

NARRATIVE: CASE EVENT DATE: 20190928
